FAERS Safety Report 7532996-3 (Version None)
Quarter: 2011Q2

REPORT INFORMATION
  Report Type: 
  Country: None (occurrence: None)
  Receive Date: 20110608
  Receipt Date: 20110525
  Transmission Date: 20111010
  Serious: Yes (Hospitalization, Other)
  Sender: FDA-Public Use
  Company Number: DE-PFIZER INC-2011113833

PATIENT
  Sex: Male
  Weight: 1.995 kg

DRUGS (10)
  1. PREDNISOLONE [Suspect]
     Dosage: 15 MG, 1X/DAY, GW 16 - 20
     Route: 064
  2. PREDNISOLONE [Suspect]
     Dosage: 20 MG, 1X/DAY, GW 20 - 22
     Route: 064
  3. VOLTAREN [Suspect]
     Indication: RHEUMATOID ARTHRITIS
     Dosage: 140 MG, 2X/DAY FOR 190 DAYS, GESTATIONAL WEEK 0-27
     Route: 064
  4. PREDNISOLONE [Suspect]
     Dosage: 15 MG, 1X/DAY, GW 27 - 35
     Route: 064
  5. FOLIC ACID [Concomitant]
     Dosage: UNK , GESTATIONAL WEEK 0-33.5
     Route: 064
     Dates: start: 20081115, end: 20090815
  6. PREDNISOLONE [Suspect]
     Indication: RHEUMATOID ARTHRITIS
     Dosage: 5 MG, 1X/DAY, FROM GESTATIONAL WEEK 0 - 14
     Route: 064
  7. IBUPROFEN [Suspect]
     Indication: RHEUMATOID ARTHRITIS
     Dosage: 600 MG, FREQUENCY UNK, FOR 43 DAYS FROM GESTATIONAL WEEK 16 TO 22
     Route: 064
  8. PARACETAMOL [Concomitant]
     Indication: RHEUMATOID ARTHRITIS
     Dosage: 1500 UP TO 3000 MG/D FROM GESTATIONAL WEEK 27 TO 35
     Route: 064
  9. HUMIRA [Concomitant]
     Indication: RHEUMATOID ARTHRITIS
     Dosage: 40 MG, FREQUENCY UNK, PRECONCEPTIONAL
     Route: 064
  10. PREDNISOLONE [Suspect]
     Dosage: 10 MG, 1X/DAY, FROM GW 14 - 16
     Route: 064

REACTIONS (7)
  - CRYPTORCHISM [None]
  - OLIGOHYDRAMNIOS [None]
  - DRUG EXPOSURE DURING PREGNANCY [None]
  - DUCTUS ARTERIOSUS STENOSIS FOETAL [None]
  - PREMATURE BABY [None]
  - HYPERBILIRUBINAEMIA NEONATAL [None]
  - FOETAL GROWTH RESTRICTION [None]
